FAERS Safety Report 19360534 (Version 1)
Quarter: 2021Q2

REPORT INFORMATION
  Report Type: Spontaneous
  Country: US (occurrence: US)
  Receive Date: 20210602
  Receipt Date: 20210602
  Transmission Date: 20210717
  Serious: Yes (Other)
  Sender: FDA-Public Use
  Company Number: US-009507513-2105USA005691

PATIENT
  Sex: Female

DRUGS (1)
  1. PEGINTRON [Suspect]
     Active Substance: PEGINTERFERON ALFA-2B
     Dosage: 4 INJECTIONS
     Dates: start: 2001

REACTIONS (3)
  - Mitral valve prolapse [Unknown]
  - Hypertension [Unknown]
  - Mitral valve incompetence [Unknown]
